FAERS Safety Report 10462693 (Version 3)
Quarter: 2015Q1

REPORT INFORMATION
  Report Type: Spontaneous
  Country: US (occurrence: US)
  Receive Date: 20140918
  Receipt Date: 20150218
  Transmission Date: 20150720
  Serious: Yes (Death, Hospitalization, Other)
  Sender: FDA-Public Use
  Company Number: US-PFIZER INC-2014256246

PATIENT
  Age: 76 Year
  Sex: Female

DRUGS (25)
  1. DILACOR XR [Concomitant]
     Active Substance: DILTIAZEM HYDROCHLORIDE
     Indication: PULMONARY HYPERTENSION
     Dosage: 240 MG, 2X/DAY
     Route: 048
     Dates: start: 2005, end: 201409
  2. MORPHINE [Concomitant]
     Active Substance: MORPHINE
     Indication: SKIN ULCER
     Dosage: APPLY 5 ML, BID WITH DRESSING CHANGE
     Route: 061
  3. NITROL [Concomitant]
     Active Substance: NITROGLYCERIN
     Dosage: UNKNOWN DOSE, REMOVE OINTMENT FOR 12 HOURS EACH DAY
  4. TRACLEER [Concomitant]
     Active Substance: BOSENTAN\BOSENTAN MONOHYDRATE
     Indication: PULMONARY HYPERTENSION
     Dosage: 125 MG, 2X/DAY
     Route: 048
     Dates: start: 2012, end: 201409
  5. XANAX [Concomitant]
     Active Substance: ALPRAZOLAM
     Indication: ANXIETY
     Dosage: 0.25 MG, (TAKE ONE-HALF TABLET TWICE DAILY AS NEEDED)
     Route: 048
  6. ROPINIROLE. [Concomitant]
     Active Substance: ROPINIROLE
     Dosage: 0.5 MG, (1 TAB NIGHTLY AT BED TIME
     Route: 048
  7. ROPINIROLE. [Concomitant]
     Active Substance: ROPINIROLE
     Dosage: TAKE 1/2 TABLET AS NEEDED
  8. VICODIN [Suspect]
     Active Substance: ACETAMINOPHEN\HYDROCODONE BITARTRATE
     Dosage: UNK
  9. ELAVIL [Concomitant]
     Active Substance: AMITRIPTYLINE HYDROCHLORIDE
     Indication: INSOMNIA
     Dosage: 25 MG, UNK (TAKE 0.5-1 TABS NIGHTLY AS NEEDED)
     Route: 048
  10. PREDNISONE. [Concomitant]
     Active Substance: PREDNISONE
     Dosage: 5 MG (TAKE 1 TAB DAILY)
     Route: 048
  11. ASPIRIN. [Concomitant]
     Active Substance: ASPIRIN
     Dosage: 81 MG (1 TABLET DAILY)
     Route: 048
  12. ZYRTEC [Concomitant]
     Active Substance: CETIRIZINE HYDROCHLORIDE
     Indication: PRURITUS
     Dosage: AS NEEDED (TAKE BY MOUTH AS NEEDED)
     Route: 048
  13. COZAAR [Concomitant]
     Active Substance: LOSARTAN POTASSIUM
     Dosage: 50 MG, 1/2 TABLET TWICE DAILY)
  14. NEXIUM [Concomitant]
     Active Substance: ESOMEPRAZOLE MAGNESIUM
     Dosage: 40 MG, UNK (1 CAPSULE TWICE DAILY)
     Route: 048
  15. OXYCONTIN [Concomitant]
     Active Substance: OXYCODONE HYDROCHLORIDE
     Dosage: 10 MG, 1 TAB EVERY 12 HOURS)
     Route: 048
  16. REVATIO [Suspect]
     Active Substance: SILDENAFIL CITRATE
     Indication: PULMONARY HYPERTENSION
     Dosage: 20 MG, 3X/DAY
     Route: 048
     Dates: start: 201006
  17. OXYCODONE HYDROCHLORIDE. [Concomitant]
     Active Substance: OXYCODONE HYDROCHLORIDE
     Dosage: 5 MG (TAKE 1-2 TABS EVERY 4 HRS AS NEEDED)
     Route: 048
  18. MICRO-K [Concomitant]
     Active Substance: POTASSIUM CHLORIDE
     Dosage: 10 MEQ, 1 CAP DAILY AS NEEDED)
  19. ARTIFICIAL TEARS [Concomitant]
     Active Substance: GLYCERIN\HYPROMELLOSES\POLYETHYLENE GLYCOL 400
     Dosage: (AT NIGHT)
     Route: 047
  20. BUPROPION [Concomitant]
     Active Substance: BUPROPION
     Dosage: 300 MG  (TAKE 1 TABLET ONE TIME DAILY)
     Route: 048
  21. LEVAQUIN [Concomitant]
     Active Substance: LEVOFLOXACIN
     Dosage: 500 MG, UNK (TAKE 1 TAB DAILY)
     Route: 048
  22. MIRALAX [Concomitant]
     Active Substance: POLYETHYLENE GLYCOL 3350
     Dosage: UNK, AS NEEDED
     Route: 048
  23. VENLAFAXINE [Concomitant]
     Active Substance: VENLAFAXINE HYDROCHLORIDE
     Dosage: 150 MG, UNK (TAKE 1 CAPSULES ONE TIME DAILY)
     Route: 048
  24. SYMBICORT [Concomitant]
     Active Substance: BUDESONIDE\FORMOTEROL FUMARATE DIHYDRATE
     Dosage: UNK
  25. LASIX [Concomitant]
     Active Substance: FUROSEMIDE
     Indication: SWELLING
     Dosage: 40 MG, (1 TAB ONCE DAILY ASS NEEDED)

REACTIONS (6)
  - Hip fracture [Unknown]
  - Tachycardia [Fatal]
  - Respiratory distress [Fatal]
  - Fall [Unknown]
  - Drug hypersensitivity [Unknown]
  - Cardiac arrest [Fatal]
